FAERS Safety Report 23170303 (Version 1)
Quarter: 2023Q4

REPORT INFORMATION
  Report Type: Spontaneous
  Country: ES (occurrence: ES)
  Receive Date: 20231110
  Receipt Date: 20231110
  Transmission Date: 20240109
  Serious: Yes (Hospitalization)
  Sender: FDA-Public Use
  Company Number: ES-STRIDES ARCOLAB LIMITED-2023SP016657

PATIENT
  Age: 73 Year
  Sex: Male

DRUGS (7)
  1. PREDNISOLONE [Suspect]
     Active Substance: PREDNISOLONE
     Indication: Cutaneous vasculitis
     Dosage: 50 MILLIGRAM PER 24 HOURS
     Route: 048
  2. SUNITINIB [Suspect]
     Active Substance: SUNITINIB
     Indication: Clear cell renal cell carcinoma
     Dosage: UNK
     Route: 065
  3. SUNITINIB [Suspect]
     Active Substance: SUNITINIB
     Indication: Metastases to peritoneum
  4. SUNITINIB [Suspect]
     Active Substance: SUNITINIB
     Indication: Metastases to lymph nodes
  5. NIVOLUMAB [Suspect]
     Active Substance: NIVOLUMAB
     Indication: Clear cell renal cell carcinoma
     Dosage: UNK UNK, CYCLICAL
     Route: 065
  6. NIVOLUMAB [Suspect]
     Active Substance: NIVOLUMAB
     Indication: Metastases to peritoneum
  7. NIVOLUMAB [Suspect]
     Active Substance: NIVOLUMAB
     Indication: Metastases to lymph nodes

REACTIONS (3)
  - Diabetic ketoacidosis [Unknown]
  - Chorea [Unknown]
  - Diabetes mellitus [Unknown]
